FAERS Safety Report 13988928 (Version 2)
Quarter: 2019Q3

REPORT INFORMATION
  Report Type: Spontaneous
  Country: US (occurrence: US)
  Receive Date: 20170919
  Receipt Date: 20190715
  Transmission Date: 20191004
  Serious: No
  Sender: FDA-Public Use
  Company Number: US-BIOGEN-2017BI00457595

PATIENT
  Sex: Female

DRUGS (1)
  1. TECFIDERA [Suspect]
     Active Substance: DIMETHYL FUMARATE
     Indication: MULTIPLE SCLEROSIS
     Dosage: MAINTENANCE DOSE
     Route: 048

REACTIONS (6)
  - Dizziness [Unknown]
  - Rash [Recovered/Resolved]
  - Flushing [Recovered/Resolved]
  - White blood cell count decreased [Unknown]
  - Gastric disorder [Recovered/Resolved]
  - Headache [Unknown]
